FAERS Safety Report 23425907 (Version 2)
Quarter: 2024Q1

REPORT INFORMATION
  Report Type: Spontaneous
  Country: US (occurrence: US)
  Receive Date: 20240122
  Receipt Date: 20240214
  Transmission Date: 20240409
  Serious: Yes (Other)
  Sender: FDA-Public Use
  Company Number: US-BRISTOL-MYERS SQUIBB COMPANY-2024-000255

PATIENT
  Age: 67 Year
  Sex: Female

DRUGS (1)
  1. LENALIDOMIDE [Suspect]
     Active Substance: LENALIDOMIDE
     Indication: Follicular lymphoma
     Dosage: TAKE 1 CAPSULE BY MOUTH EVERY DAY ON DAYS 1-21 OF A 28 DAY CYCLE
     Route: 048
     Dates: start: 20231128

REACTIONS (6)
  - Dizziness [Recovering/Resolving]
  - Somnolence [Not Recovered/Not Resolved]
  - Emotional disorder [Unknown]
  - Sinus disorder [Unknown]
  - Bronchial disorder [Unknown]
  - Fatigue [Unknown]
